FAERS Safety Report 9518530 (Version 2)
Quarter: 2013Q4

REPORT INFORMATION
  Report Type: Report from Study
  Country: DE (occurrence: DE)
  Receive Date: 20130912
  Receipt Date: 20131023
  Transmission Date: 20140711
  Serious: Yes (Death)
  Sender: FDA-Public Use
  Company Number: DE-ROCHE-1272878

PATIENT
  Age: 76 Year
  Sex: Male

DRUGS (5)
  1. RANIBIZUMAB [Suspect]
     Indication: VISUAL IMPAIRMENT
     Route: 050
     Dates: start: 20120306
  2. RANIBIZUMAB [Suspect]
     Route: 050
     Dates: start: 20120410
  3. RANIBIZUMAB [Suspect]
     Route: 050
     Dates: start: 20130515
  4. RANIBIZUMAB [Suspect]
     Route: 050
     Dates: start: 20120528
  5. RANIBIZUMAB [Suspect]
     Route: 050
     Dates: start: 20130625, end: 20130625

REACTIONS (1)
  - Death [Fatal]
